FAERS Safety Report 25879382 (Version 1)
Quarter: 2025Q4

REPORT INFORMATION
  Report Type: Spontaneous
  Country: US (occurrence: US)
  Receive Date: 20251003
  Receipt Date: 20251003
  Transmission Date: 20260118
  Serious: Yes (Other)
  Sender: DERMARITE INDUSTRIES
  Company Number: US-DERMARITE INDUSTRIES, LLC.-2025-DER-US000053

PATIENT

DRUGS (1)
  1. ZINC ACETATE [Suspect]
     Active Substance: ZINC ACETATE
     Indication: Wound
     Dosage: UNK 8 OZ
     Route: 065

REACTIONS (2)
  - Sepsis [Unknown]
  - Infection [Unknown]

NARRATIVE: CASE EVENT DATE: 20240901
